FAERS Safety Report 5604894-3 (Version None)
Quarter: 2008Q1

REPORT INFORMATION
  Report Type: 
  Country: None (occurrence: None)
  Receive Date: 20080128
  Receipt Date: 20080118
  Transmission Date: 20080703
  Serious: Yes (Hospitalization, Other)
  Sender: FDA-Public Use
  Company Number: US-PFIZER INC-2007099270

PATIENT
  Sex: Female
  Weight: 50 kg

DRUGS (8)
  1. LIPITOR [Suspect]
     Indication: BLOOD CHOLESTEROL INCREASED
  2. QUINAPRIL HCL [Concomitant]
  3. VITAMIN CAP [Concomitant]
  4. ASCORBIC ACID [Concomitant]
  5. NIACIN [Concomitant]
  6. BETACAROTENE [Concomitant]
  7. ASPIRIN [Concomitant]
  8. SPIRIVA [Concomitant]

REACTIONS (10)
  - CONFUSIONAL STATE [None]
  - DECREASED APPETITE [None]
  - HAEMATOCRIT DECREASED [None]
  - HAEMOGLOBIN DECREASED [None]
  - HAEMORRHAGE [None]
  - HOSPITALISATION [None]
  - MELAENA [None]
  - MYALGIA [None]
  - THINKING ABNORMAL [None]
  - WEIGHT DECREASED [None]
